FAERS Safety Report 16416216 (Version 1)
Quarter: 2019Q2

REPORT INFORMATION
  Report Type: Spontaneous
  Country: CL (occurrence: CL)
  Receive Date: 20190611
  Receipt Date: 20190611
  Transmission Date: 20190711
  Serious: Yes (Other)
  Sender: FDA-Public Use
  Company Number: CL-PROVELL PHARMACEUTICALS-2068080

PATIENT
  Sex: Female

DRUGS (1)
  1. EUTHYROX [Suspect]
     Active Substance: LEVOTHYROXINE SODIUM
     Indication: PRODUCT USED FOR UNKNOWN INDICATION

REACTIONS (11)
  - Hyperthyroidism [None]
  - Malaise [None]
  - Blood thyroid stimulating hormone [None]
  - Blood cholesterol increased [None]
  - Weight increased [None]
  - Syncope [None]
  - Depression [None]
  - Anaemia [None]
  - Dysgeusia [None]
  - Feeling abnormal [None]
  - Blood potassium increased [None]
